FAERS Safety Report 6819669-7 (Version None)
Quarter: 2010Q2

REPORT INFORMATION
  Report Type: 
  Country: None (occurrence: None)
  Receive Date: 20100630
  Receipt Date: 20100617
  Transmission Date: 20101027
  Serious: Yes (Other)
  Sender: FDA-Public Use
  Company Number: AUR-APL-2010-01589

PATIENT
  Age: 40 Year
  Sex: Male
  Weight: 99.7913 kg

DRUGS (3)
  1. CITALOPRAM (GREENSTONE) [Suspect]
     Indication: ANXIETY
     Dosage: 20MG, DAILY, ORAL
     Route: 048
     Dates: start: 20100604
  2. CITALOPRAM (GREENSTONE) [Suspect]
     Indication: DEPRESSION
     Dosage: 20MG, DAILY, ORAL
     Route: 048
     Dates: start: 20100604
  3. IBUPROFEN [Concomitant]

REACTIONS (2)
  - BLOOD URINE PRESENT [None]
  - NEPHROLITHIASIS [None]
